FAERS Safety Report 5044737-2 (Version None)
Quarter: 2006Q2

REPORT INFORMATION
  Report Type: 
  Country: None (occurrence: None)
  Receive Date: 20060601
  Receipt Date: 20060223
  Transmission Date: 20061013
  Serious: No
  Sender: FDA-Public Use
  Company Number: 2006-BP-02104BP

PATIENT
  Sex: Female

DRUGS (3)
  1. SPIRIVA [Suspect]
     Indication: EMPHYSEMA
     Dosage: 18 MCG (18 MCG, 1 IN 1 D), IH
     Route: 055
     Dates: start: 20060220
  2. ALBUTEROL SPIROS [Concomitant]
  3. TAMOXIFEN CITRATE [Concomitant]

REACTIONS (2)
  - CHEST DISCOMFORT [None]
  - THROAT IRRITATION [None]
